FAERS Safety Report 14830091 (Version 2)
Quarter: 2018Q2

REPORT INFORMATION
  Report Type: Report from Study
  Country: US (occurrence: US)
  Receive Date: 20180430
  Receipt Date: 20180613
  Transmission Date: 20180711
  Serious: No
  Sender: FDA-Public Use
  Company Number: PHEH2018US016440

PATIENT
  Sex: Male

DRUGS (1)
  1. COSENTYX [Suspect]
     Active Substance: SECUKINUMAB
     Indication: PSORIATIC ARTHROPATHY
     Dosage: (2 SHOTS 150 MG) 300 MG, QMO
     Route: 065

REACTIONS (4)
  - Wrist deformity [Unknown]
  - Discomfort [Unknown]
  - Pain [Unknown]
  - Injection site pain [Unknown]
